FAERS Safety Report 20093842 (Version 1)
Quarter: 2021Q4

REPORT INFORMATION
  Report Type: Spontaneous
  Country: US (occurrence: US)
  Receive Date: 20211121
  Receipt Date: 20211121
  Transmission Date: 20220303
  Serious: No
  Sender: FDA-Public Use
  Company Number: US-JNJFOC-20211112171

PATIENT
  Age: 78 Year
  Sex: Female
  Weight: 82.6 kg

DRUGS (36)
  1. STELARA [Suspect]
     Active Substance: USTEKINUMAB
     Indication: Crohn^s disease
     Route: 058
  2. AMLODIPINE [Concomitant]
     Active Substance: AMLODIPINE BESYLATE
     Route: 065
  3. ASPIRIN [Concomitant]
     Active Substance: ASPIRIN
  4. BIOTIN [Concomitant]
     Active Substance: BIOTIN
     Route: 048
  5. CALCIUM CARBONATE [Concomitant]
     Active Substance: CALCIUM CARBONATE
     Route: 048
  6. VITAMIN D3 [Concomitant]
     Active Substance: CHOLECALCIFEROL
     Dosage: 50.000 UNITS
  7. COLESTIPOL [Concomitant]
     Active Substance: COLESTIPOL
     Route: 048
  8. CLOBETASOL [Concomitant]
     Active Substance: CLOBETASOL
  9. CYANOCOBALAMIN [Concomitant]
     Active Substance: CYANOCOBALAMIN
     Dosage: 1000 MCG/ML
     Route: 065
  10. CYCLOSPORINE [Concomitant]
     Active Substance: CYCLOSPORINE
     Route: 065
  11. DICLOFENAC [Concomitant]
     Active Substance: DICLOFENAC
  12. HYDROCODONE [Concomitant]
     Active Substance: HYDROCODONE
  13. LEVOTHYROXINE [Concomitant]
     Active Substance: LEVOTHYROXINE
     Dosage: 150 MCG
     Route: 048
  14. LORAZEPAM [Concomitant]
     Active Substance: LORAZEPAM
  15. MELOXICAM [Concomitant]
     Active Substance: MELOXICAM
  16. MESALAMINE [Concomitant]
     Active Substance: MESALAMINE
     Route: 048
  17. MESALAMINE EXTENDED RELEASE [Concomitant]
     Route: 048
  18. METOPROLOL [Concomitant]
     Active Substance: METOPROLOL
  19. MONTELUKAST [Concomitant]
     Active Substance: MONTELUKAST SODIUM
  20. MYRBETRIQ [Concomitant]
     Active Substance: MIRABEGRON
  21. LOVAZA [Concomitant]
     Active Substance: OMEGA-3-ACID ETHYL ESTERS
     Route: 048
  22. OMEPRAZOLE [Concomitant]
     Active Substance: OMEPRAZOLE
  23. LIVALO [Concomitant]
     Active Substance: PITAVASTATIN CALCIUM
  24. PRAVACHOL [Concomitant]
     Active Substance: PRAVASTATIN SODIUM
  25. PLANTAGO AFRA SEED [Concomitant]
     Active Substance: PLANTAGO AFRA SEED
  26. PYRIDOXINE [Concomitant]
     Active Substance: PYRIDOXINE
  27. SPIRIVA [Concomitant]
     Active Substance: TIOTROPIUM BROMIDE MONOHYDRATE
     Dosage: 18 MCG
  28. VALSARTAN [Concomitant]
     Active Substance: VALSARTAN
  29. ENTYVIO [Concomitant]
     Active Substance: VEDOLIZUMAB
  30. VENTOLIN HFA [Concomitant]
     Active Substance: ALBUTEROL SULFATE
     Dosage: 90 MCG
  31. VERAPAMIL HYDROCHLORIDE [Concomitant]
     Active Substance: VERAPAMIL HYDROCHLORIDE
  32. BUDESONIDE\FORMOTEROL [Concomitant]
     Active Substance: BUDESONIDE\FORMOTEROL
     Dosage: 160-4.5 MCG
  33. FLUTICASONE PROPIONATE [Concomitant]
     Active Substance: FLUTICASONE PROPIONATE
     Dosage: 50 MCG
  34. PROAIR HFA [Concomitant]
     Active Substance: ALBUTEROL SULFATE
     Dosage: 90 MCG
  35. LIDOCAINE [Concomitant]
     Active Substance: LIDOCAINE
  36. METHYLPREDNISOLONE [Concomitant]
     Active Substance: METHYLPREDNISOLONE

REACTIONS (2)
  - Rotator cuff syndrome [Unknown]
  - Osteoarthritis [Unknown]
